FAERS Safety Report 10043700 (Version 1)
Quarter: 2014Q1

REPORT INFORMATION
  Report Type: Spontaneous
  Country: FR (occurrence: FR)
  Receive Date: 20140328
  Receipt Date: 20140328
  Transmission Date: 20141002
  Serious: Yes (Hospitalization)
  Sender: FDA-Public Use
  Company Number: PHHY2014FR037508

PATIENT
  Age: 75 Year
  Sex: Female

DRUGS (4)
  1. GLIVEC [Suspect]
     Indication: GASTROINTESTINAL STROMAL TUMOUR
     Dosage: 400 MG, DAILY
     Route: 048
     Dates: start: 20131220, end: 20140228
  2. SULPIRIDE [Concomitant]
     Dosage: 50 MG, DAILY
     Dates: start: 2008
  3. LYSANXIA [Concomitant]
     Dosage: 10 MG, DAILY
     Dates: start: 1994
  4. PREVISCAN [Concomitant]
     Dosage: UNK UKN, UNK
     Dates: start: 2010

REACTIONS (1)
  - Cutaneous vasculitis [Recovering/Resolving]
